FAERS Safety Report 26214370 (Version 1)
Quarter: 2025Q4

REPORT INFORMATION
  Report Type: Spontaneous
  Country: US (occurrence: US)
  Receive Date: 20251230
  Receipt Date: 20251230
  Transmission Date: 20260117
  Serious: Yes (Hospitalization, Other)
  Sender: AMGEN
  Company Number: US-AMGEN-USASP2025254756

PATIENT
  Age: 52 Year
  Sex: Male

DRUGS (2)
  1. PREDNISONE [Suspect]
     Active Substance: PREDNISONE
     Indication: Herpes zoster oticus
     Dosage: UNK
     Route: 065
  2. VALACYCLOVIR [Concomitant]
     Active Substance: VALACYCLOVIR HYDROCHLORIDE
     Indication: Herpes zoster oticus
     Dosage: UNK
     Route: 065

REACTIONS (4)
  - Nystagmus [Unknown]
  - Hyperventilation [Unknown]
  - Drug effective for unapproved indication [Unknown]
  - Off label use [Unknown]
